FAERS Safety Report 4298629-7 (Version None)
Quarter: 2004Q1

REPORT INFORMATION
  Report Type: 
  Country: None (occurrence: None)
  Receive Date: 20040218
  Receipt Date: 20030626
  Transmission Date: 20041129
  Serious: No
  Sender: FDA-Public Use
  Company Number: US-GLAXOSMITHKLINE-A0414177A

PATIENT
  Age: 92 Year
  Sex: Female

DRUGS (10)
  1. PAXIL [Suspect]
     Dosage: 10MG PER DAY
     Route: 048
  2. ZYPREXA [Concomitant]
  3. FUROSEMIDE [Concomitant]
  4. TOPROL-XL [Concomitant]
  5. DIOVAN [Concomitant]
  6. LIPITOR [Concomitant]
  7. ASPIRIN [Concomitant]
  8. MULTI-VITAMIN [Concomitant]
  9. LIQUID POTASSIUM [Concomitant]
  10. MIACALCIN [Concomitant]

REACTIONS (1)
  - WEIGHT INCREASED [None]
